FAERS Safety Report 14689756 (Version 1)
Quarter: 2018Q1

REPORT INFORMATION
  Report Type: Spontaneous
  Country: US (occurrence: US)
  Receive Date: 20180327
  Receipt Date: 20180327
  Transmission Date: 20180509
  Serious: Yes (Other)
  Sender: FDA-Public Use
  Company Number: None

PATIENT
  Age: 20 Year
  Sex: Male
  Weight: 76.5 kg

DRUGS (1)
  1. HALOPERIDOL LACTATE. [Suspect]
     Active Substance: HALOPERIDOL LACTATE
     Indication: DELIRIUM
     Route: 042
     Dates: start: 20180318, end: 20180324

REACTIONS (4)
  - Muscle rigidity [None]
  - Hyperhidrosis [None]
  - Moaning [None]
  - Dystonia [None]

NARRATIVE: CASE EVENT DATE: 20180325
